FAERS Safety Report 11301000 (Version 1)
Quarter: 2015Q3

REPORT INFORMATION
  Report Type: Spontaneous
  Country: US (occurrence: None)
  Receive Date: 20150722
  Receipt Date: 20150722
  Transmission Date: 20151125
  Serious: Yes (Other)
  Sender: FDA-Public Use
  Company Number: US-2015VAL000254

PATIENT
  Age: 21 Year
  Sex: Female
  Weight: 80.7 kg

DRUGS (4)
  1. EQUETRO [Suspect]
     Active Substance: CARBAMAZEPINE
     Indication: PRODUCT USED FOR UNKNOWN INDICATION
     Dates: start: 20150328, end: 20150328
  2. AMBIEN [Concomitant]
     Active Substance: ZOLPIDEM TARTRATE
  3. ZOLOFT [Concomitant]
     Active Substance: SERTRALINE HYDROCHLORIDE
  4. ABILIFY [Concomitant]
     Active Substance: ARIPIPRAZOLE

REACTIONS (3)
  - Depressed mood [None]
  - Intentional overdose [None]
  - Borderline personality disorder [None]

NARRATIVE: CASE EVENT DATE: 20150328
